FAERS Safety Report 7124794-X (Version None)
Quarter: 2010Q4

REPORT INFORMATION
  Report Type: 
  Country: None (occurrence: None)
  Receive Date: 20101123
  Receipt Date: 20101123
  Transmission Date: 20110411
  Serious: Yes (Hospitalization)
  Sender: FDA-Public Use
  Company Number: None

PATIENT
  Age: 87 Year
  Sex: Male
  Weight: 91.173 kg

DRUGS (8)
  1. CEFEPIME [Suspect]
     Indication: INFECTION
     Dosage: 1000 MG Q12H IV BOLUS
     Route: 040
     Dates: start: 20100806, end: 20100810
  2. VANCOMYCIN 1000 MG [Suspect]
     Indication: INFECTION
     Dosage: 1000 MG DAILY IV BOLUS
     Route: 040
     Dates: start: 20100811, end: 20100814
  3. COZAAR [Concomitant]
  4. FLOMAX [Concomitant]
  5. LASIX [Concomitant]
  6. NEXIUM [Concomitant]
  7. NORVASC [Concomitant]
  8. PROVENTIL [Concomitant]

REACTIONS (3)
  - CLOSTRIDIUM DIFFICILE COLITIS [None]
  - GASTROINTESTINAL DISORDER [None]
  - ILEUS [None]
